FAERS Safety Report 14641672 (Version 2)
Quarter: 2018Q3

REPORT INFORMATION
  Report Type: Spontaneous
  Country: US (occurrence: US)
  Receive Date: 20180315
  Receipt Date: 20180705
  Transmission Date: 20181010
  Serious: No
  Sender: FDA-Public Use
  Company Number: US-BIOGEN-2018BI00539950

PATIENT
  Sex: Female

DRUGS (1)
  1. TYSABRI [Suspect]
     Active Substance: NATALIZUMAB
     Indication: MULTIPLE SCLEROSIS
     Route: 065
     Dates: start: 20161110

REACTIONS (5)
  - Multiple sclerosis relapse [Unknown]
  - Frustration tolerance decreased [Not Recovered/Not Resolved]
  - Anxiety [Unknown]
  - Stress [Unknown]
  - Fatigue [Recovered/Resolved]
